FAERS Safety Report 4839589-7 (Version None)
Quarter: 2005Q4

REPORT INFORMATION
  Report Type: 
  Country: None (occurrence: None)
  Receive Date: 20051125
  Receipt Date: 20051107
  Transmission Date: 20060501
  Serious: Yes (Death)
  Sender: FDA-Public Use
  Company Number: ENTC2005-0284

PATIENT
  Age: 67 Year
  Sex: Male

DRUGS (3)
  1. STALEVO 100 [Suspect]
     Indication: PARKINSON'S DISEASE
     Route: 048
     Dates: start: 20050211, end: 20050910
  2. PERGOLIDE [Concomitant]
  3. OXAZEPAM [Concomitant]

REACTIONS (1)
  - CARDIAC ARREST [None]
